FAERS Safety Report 23307722 (Version 3)
Quarter: 2024Q1

REPORT INFORMATION
  Report Type: Report from Study
  Country: US (occurrence: US)
  Receive Date: 20231218
  Receipt Date: 20240304
  Transmission Date: 20240410
  Serious: Yes (Other)
  Sender: FDA-Public Use
  Company Number: US-HORIZON THERAPEUTICS-HZN-2023-010657

PATIENT

DRUGS (2)
  1. RAVICTI [Suspect]
     Active Substance: GLYCEROL PHENYLBUTYRATE
     Indication: Ornithine transcarbamoylase deficiency
     Dosage: FIRST DOSE
     Route: 065
     Dates: start: 20130430
  2. RAVICTI [Suspect]
     Active Substance: GLYCEROL PHENYLBUTYRATE
     Dosage: 2.25 ML, TID (EVERY 8 HOURS)
     Route: 048
     Dates: start: 202001

REACTIONS (7)
  - Haematemesis [Unknown]
  - Seizure [Recovering/Resolving]
  - Spinal compression fracture [Unknown]
  - Sleep deficit [Unknown]
  - Urinary tract infection [Unknown]
  - Bone loss [Unknown]
  - Gastrooesophageal reflux disease [Unknown]

NARRATIVE: CASE EVENT DATE: 20230101
